FAERS Safety Report 7731124-9 (Version None)
Quarter: 2011Q3

REPORT INFORMATION
  Report Type: 
  Country: None (occurrence: None)
  Receive Date: 20110906
  Receipt Date: 20110906
  Transmission Date: 20111222
  Serious: Yes (Hospitalization, Disabling)
  Sender: FDA-Public Use
  Company Number: None

PATIENT
  Age: 48 Year
  Sex: Male
  Weight: 102 kg

DRUGS (2)
  1. CUBICIN [Suspect]
     Indication: CELLULITIS
     Dosage: 750MG
     Route: 040
     Dates: start: 20110823, end: 20110825
  2. CUBICIN [Concomitant]
     Dosage: 750MG
     Route: 040
     Dates: start: 20110826, end: 20110829

REACTIONS (4)
  - PYREXIA [None]
  - STENOTROPHOMONAS TEST POSITIVE [None]
  - CHILLS [None]
  - PRODUCT CONTAMINATION [None]
